FAERS Safety Report 25036502 (Version 1)
Quarter: 2025Q1

REPORT INFORMATION
  Report Type: Spontaneous
  Country: IN (occurrence: IN)
  Receive Date: 20250304
  Receipt Date: 20250304
  Transmission Date: 20250408
  Serious: Yes (Other)
  Sender: MYLAN
  Company Number: IN-MYLANLABS-2025M1016988

PATIENT
  Age: 37 Year
  Sex: Female

DRUGS (6)
  1. IMATINIB [Suspect]
     Active Substance: IMATINIB
     Indication: Gastrointestinal stromal tumour
  2. IMATINIB [Suspect]
     Active Substance: IMATINIB
     Indication: Gastrointestinal cancer metastatic
  3. SUNITINIB [Suspect]
     Active Substance: SUNITINIB
     Indication: Gastrointestinal stromal tumour
  4. SUNITINIB [Suspect]
     Active Substance: SUNITINIB
     Indication: Gastrointestinal cancer metastatic
  5. SORAFENIB [Suspect]
     Active Substance: SORAFENIB
     Indication: Gastrointestinal stromal tumour
  6. SORAFENIB [Suspect]
     Active Substance: SORAFENIB
     Indication: Gastrointestinal cancer metastatic

REACTIONS (3)
  - Drug resistance [Unknown]
  - Drug ineffective [Unknown]
  - Disease progression [Unknown]
